FAERS Safety Report 10374805 (Version 2)
Quarter: 2014Q3

REPORT INFORMATION
  Report Type: Spontaneous
  Country: NL (occurrence: NL)
  Receive Date: 20140811
  Receipt Date: 20140815
  Transmission Date: 20150326
  Serious: Yes (Other)
  Sender: FDA-Public Use
  Company Number: NL-009507513-1408NLD002420

PATIENT
  Sex: Male

DRUGS (1)
  1. FOSAVANCE [Suspect]
     Active Substance: ALENDRONATE SODIUM\CHOLECALCIFEROL
     Indication: OSTEOGENESIS IMPERFECTA
     Dosage: 70 MG WEEKLY
     Route: 048
     Dates: start: 2004

REACTIONS (9)
  - Oropharyngeal discomfort [Unknown]
  - Adverse event [Unknown]
  - Oesophageal disorder [Unknown]
  - Bone swelling [Unknown]
  - Plasma cell myeloma [Recovered/Resolved]
  - Nosocomial infection [Unknown]
  - Non-Hodgkin^s lymphoma [Recovered/Resolved]
  - Decreased immune responsiveness [Not Recovered/Not Resolved]
  - Paranasal sinus discomfort [Unknown]

NARRATIVE: CASE EVENT DATE: 2012
